FAERS Safety Report 5209366-6 (Version None)
Quarter: 2006Q4

REPORT INFORMATION
  Report Type: 
  Country: None (occurrence: None)
  Receive Date: 20061101
  Receipt Date: 20060914
  Transmission Date: 20070319
  Serious: No
  Sender: FDA-Public Use
  Company Number: SPV1-2006-00843

PATIENT
  Age: 82 Year
  Sex: Male

DRUGS (1)
  1. FOSRENOL [Suspect]
     Indication: HYPERPHOSPHATAEMIA
     Dosage: 1.5 G, 3X/DAY: TID X 6 MONTHS, ORAL
     Route: 048

REACTIONS (2)
  - ARTHRALGIA [None]
  - X-RAY ABNORMAL [None]
